FAERS Safety Report 7914173-7 (Version None)
Quarter: 2011Q4

REPORT INFORMATION
  Report Type: 
  Country: None (occurrence: None)
  Receive Date: 20111115
  Receipt Date: 20111115
  Transmission Date: 20120403
  Serious: Yes (Other)
  Sender: FDA-Public Use
  Company Number: None

PATIENT
  Age: 27 Year
  Sex: Male
  Weight: 86.182 kg

DRUGS (1)
  1. NOROXIN [Suspect]
     Indication: URINARY TRACT INFECTION
     Dosage: 1 PILL
     Dates: start: 20111104, end: 20111107

REACTIONS (5)
  - TENDONITIS [None]
  - DIZZINESS [None]
  - HEART RATE IRREGULAR [None]
  - FEAR [None]
  - CHEST PAIN [None]
